FAERS Safety Report 17688932 (Version 1)
Quarter: 2020Q2

REPORT INFORMATION
  Report Type: Spontaneous
  Country: US (occurrence: US)
  Receive Date: 20200420
  Receipt Date: 20200420
  Transmission Date: 20200714
  Serious: No
  Sender: FDA-Public Use
  Company Number: None

PATIENT
  Age: 62 Year
  Sex: Female

DRUGS (1)
  1. ODOMZO [Suspect]
     Active Substance: SONIDEGIB
     Route: 048
     Dates: start: 202002

REACTIONS (3)
  - Fatigue [None]
  - Blood thyroid stimulating hormone decreased [None]
  - Thyroid cancer [None]

NARRATIVE: CASE EVENT DATE: 20200406
